FAERS Safety Report 26144566 (Version 1)
Quarter: 2025Q4

REPORT INFORMATION
  Report Type: Spontaneous
  Country: US (occurrence: None)
  Receive Date: 20251211
  Receipt Date: 20251211
  Transmission Date: 20260118
  Serious: Yes (Hospitalization)
  Sender: FDA-CTU
  Company Number: None

PATIENT
  Age: 78 Year
  Sex: Male
  Weight: 73 kg

DRUGS (1)
  1. EMPAGLIFLOZIN [Suspect]
     Active Substance: EMPAGLIFLOZIN
     Indication: Diabetes mellitus
     Dosage: FREQUENCY : DAILY;
     Route: 048
     Dates: start: 20200825, end: 20251016

REACTIONS (3)
  - Diabetic ketoacidosis [None]
  - Delirium [None]
  - Urinary retention [None]

NARRATIVE: CASE EVENT DATE: 20251016
